FAERS Safety Report 5353421-7 (Version None)
Quarter: 2007Q2

REPORT INFORMATION
  Report Type: 
  Country: None (occurrence: None)
  Receive Date: 20070612
  Receipt Date: 20070604
  Transmission Date: 20071010
  Serious: Yes (Hospitalization, Other)
  Sender: FDA-Public Use
  Company Number: PHEH2006US06343

PATIENT
  Age: 54 Year
  Sex: Male
  Weight: 92.97 kg

DRUGS (24)
  1. AREDIA [Suspect]
     Indication: MULTIPLE MYELOMA
     Dosage: UNK, UNK
     Dates: start: 19990301
  2. ZOMETA [Suspect]
     Indication: MULTIPLE MYELOMA
     Dosage: UNK, QMO
     Route: 042
     Dates: start: 20020101
  3. VINCRISTINE [Concomitant]
     Indication: CHEMOTHERAPY
     Dosage: 0.4 MG IV X FOUR DAYS
     Route: 042
     Dates: start: 19990308, end: 19990601
  4. ADRIAMYCIN PFS [Concomitant]
     Indication: CHEMOTHERAPY
     Dosage: 19 G IV X FOUR DAYS
     Route: 042
     Dates: start: 19990308, end: 19990601
  5. DECADRON [Concomitant]
     Dosage: 40 MG X FOUR DAYS
     Route: 048
     Dates: start: 19990308, end: 19990601
  6. TOPROL-XL [Concomitant]
     Indication: HYPERTENSION
     Dosage: 50 MG, QD
     Route: 048
     Dates: start: 19990308
  7. HYDROCHLOROTHIAZIDE [Concomitant]
     Indication: HYPERTENSION
     Dosage: 225 MG, QD
     Route: 048
     Dates: start: 19990308
  8. ULTRAM [Concomitant]
     Dosage: 50 MG, QD
     Route: 048
     Dates: start: 19990308
  9. LEVAQUIN [Concomitant]
     Dosage: 500 MG, UNK
     Route: 048
     Dates: start: 19990409
  10. COMBIVENT [Concomitant]
     Dosage: 2 PUFFS BID
     Dates: start: 19990409
  11. AZMACORT [Concomitant]
     Dosage: 4 PUFF BID
     Dates: start: 19990409
  12. SEPTRA DS [Concomitant]
     Indication: PROPHYLAXIS
  13. NICODERM [Concomitant]
  14. ADALAT [Concomitant]
  15. MARINOL [Concomitant]
  16. ZANTAC [Concomitant]
  17. CYCLOSPORINE [Concomitant]
  18. ATIVAN [Concomitant]
     Dosage: UNK, PRN
  19. IMODIUM [Concomitant]
     Dosage: UNK, PRN
  20. PREDNISONE TAB [Concomitant]
  21. ALBUTEROL [Concomitant]
  22. LORTAB [Concomitant]
  23. SEREVENT [Concomitant]
  24. MORPHINE SULFATE [Concomitant]

REACTIONS (50)
  - ANAEMIA [None]
  - ANOREXIA [None]
  - ARTERIOVENOUS MALFORMATION [None]
  - ARTHRALGIA [None]
  - ASTHENIA [None]
  - BACK PAIN [None]
  - BONE DISORDER [None]
  - BONE FISTULA [None]
  - BONE LESION [None]
  - BONE MARROW TRANSPLANT [None]
  - CHEST PAIN [None]
  - DECREASED INTEREST [None]
  - DEFORMITY [None]
  - DIARRHOEA [None]
  - EAR PAIN [None]
  - EMOTIONAL DISTRESS [None]
  - EPISTAXIS [None]
  - FATIGUE [None]
  - HEADACHE [None]
  - HEART RATE INCREASED [None]
  - HEPATIC STEATOSIS [None]
  - HERPES ZOSTER [None]
  - HYPERBARIC OXYGEN THERAPY [None]
  - HYPOTENSION [None]
  - INSOMNIA [None]
  - INTERVERTEBRAL DISC DISORDER [None]
  - JAW OPERATION [None]
  - LIFE EXPECTANCY SHORTENED [None]
  - LUNG NEOPLASM [None]
  - MALIGNANT TUMOUR EXCISION [None]
  - MONOCLONAL IMMUNOGLOBULIN PRESENT [None]
  - MUCOSAL INFLAMMATION [None]
  - NERVE BLOCK [None]
  - NEUTROPENIA [None]
  - ORAL DISCOMFORT [None]
  - ORAL INFECTION [None]
  - ORAL PAIN [None]
  - OSTEOMYELITIS [None]
  - OSTEONECROSIS [None]
  - PAIN IN EXTREMITY [None]
  - POST HERPETIC NEURALGIA [None]
  - RENAL CYST [None]
  - RHEUMATOID FACTOR POSITIVE [None]
  - SINUSITIS [None]
  - SQUAMOUS CELL CARCINOMA [None]
  - TONGUE COATED [None]
  - TOOTH INFECTION [None]
  - UPPER RESPIRATORY TRACT INFECTION [None]
  - WEIGHT DECREASED [None]
  - WHITE BLOOD CELL COUNT INCREASED [None]
